FAERS Safety Report 22018955 (Version 3)
Quarter: 2023Q1

REPORT INFORMATION
  Report Type: Spontaneous
  Country: US (occurrence: US)
  Receive Date: 20230222
  Receipt Date: 20230322
  Transmission Date: 20230418
  Serious: Yes (Death, Other)
  Sender: FDA-Public Use
  Company Number: US-BRISTOL-MYERS SQUIBB COMPANY-2023-026017

PATIENT
  Age: 63 Year
  Sex: Male
  Weight: 76.2 kg

DRUGS (8)
  1. OPDIVO [Suspect]
     Active Substance: NIVOLUMAB
     Indication: Lung neoplasm malignant
     Dosage: DOSE : OPDIVO 360MG/ YERVOY 100MG;     FREQ : EVERY 3 WEEKS/YERVOY EVERY 6 WEEKS
     Route: 042
  2. YERVOY [Suspect]
     Active Substance: IPILIMUMAB
     Indication: Lung neoplasm malignant
     Dosage: DOSE : OPDIVO 360MG/ YERVOY 100MG;     FREQ : EVERY 3 WEEKS/YERVOY EVERY 6 WEEKS
     Route: 042
  3. LIDOCAINE AND PRILOCAINE [Concomitant]
     Active Substance: LIDOCAINE\PRILOCAINE
     Indication: Product used for unknown indication
     Dosage: 2.5-2.5% CREAM 1 EXTERNAL TO SITE 30 MINUTES PRIOR TO TREATMENT .COVER WITH PLASTIC WRAP, ACTIVE-HX
     Dates: start: 20220628
  4. PROCHLORPERAZINE MALEATE [Concomitant]
     Active Substance: PROCHLORPERAZINE MALEATE
     Indication: Product used for unknown indication
     Dosage: 5 MG TABLET 1-2 ORAL AT BEDTIME AS NEEDED ACTIVE -HX ENTRY.
     Dates: start: 20220628
  5. ONDANSETRON HCL [Concomitant]
     Active Substance: ONDANSETRON HYDROCHLORIDE
     Indication: Nausea
     Dosage: 8 MG TABLET 1 ORAL 3 TIMES A DAY AS NEEDED. HX ENTRY.
     Dates: start: 20220629
  6. COLACE [Concomitant]
     Active Substance: DOCUSATE SODIUM
     Indication: Product used for unknown indication
     Dosage: 100 MG CAPSULE 1 ORAL TWICE A DAY ACTIVE -HX ENTRY.
     Dates: start: 20220811
  7. FOLIC ACID [Concomitant]
     Active Substance: FOLIC ACID
     Indication: Product used for unknown indication
     Dosage: 1 MG TABLET 1 ORAL DAILY HX ENTRY.
     Dates: start: 20221207
  8. MIDODRINE HYDROCHLORIDE [Concomitant]
     Active Substance: MIDODRINE HYDROCHLORIDE
     Indication: Product used for unknown indication
     Dosage: 10 MG TABLET 1 ORAL THREE TIMES DAILY ACTIVE -HX ENTRY.

REACTIONS (2)
  - Death [Fatal]
  - Prescribed overdose [Unknown]

NARRATIVE: CASE EVENT DATE: 20230201
